FAERS Safety Report 13344520 (Version 1)
Quarter: 2017Q1

REPORT INFORMATION
  Report Type: Spontaneous
  Country: US (occurrence: US)
  Receive Date: 20170317
  Receipt Date: 20170317
  Transmission Date: 20170428
  Serious: No
  Sender: FDA-Public Use
  Company Number: US-NATCO PHARMA LIMITED-1064324

PATIENT
  Sex: Female

DRUGS (1)
  1. RIZATRIPTAN BENZOATE ORALLY DISINTEGRATING TABLETS, 5 MG AND 10 MG [Suspect]
     Active Substance: RIZATRIPTAN BENZOATE
     Indication: MIGRAINE
     Route: 048
     Dates: start: 20170102, end: 20170106

REACTIONS (5)
  - Product solubility abnormal [None]
  - Product taste abnormal [None]
  - Product physical issue [None]
  - Product substitution issue [None]
  - Drug ineffective [None]
